FAERS Safety Report 10499202 (Version 1)
Quarter: 2014Q4

REPORT INFORMATION
  Report Type: Spontaneous
  Country: US (occurrence: US)
  Receive Date: 20141006
  Receipt Date: 20141006
  Transmission Date: 20150528
  Serious: No
  Sender: FDA-Public Use
  Company Number: US-AMGEN INC.-USASP2014025802

PATIENT

DRUGS (3)
  1. XGEVA [Suspect]
     Active Substance: DENOSUMAB
     Indication: METASTASES TO BONE
     Dosage: UNK UNK, QMO
     Route: 065
  2. PROVENGE [Concomitant]
     Active Substance: SIPULEUCEL-T
  3. XTANDI [Concomitant]
     Active Substance: ENZALUTAMIDE

REACTIONS (1)
  - Scan abnormal [Unknown]
